FAERS Safety Report 4318389-0 (Version None)
Quarter: 2004Q1

REPORT INFORMATION
  Report Type: 
  Country: None (occurrence: None)
  Receive Date: 20040315
  Receipt Date: 20040303
  Transmission Date: 20041129
  Serious: Yes (Hospitalization)
  Sender: FDA-Public Use
  Company Number: DE-JNJFOC-20040301598

PATIENT
  Age: 35 Year
  Sex: Male

DRUGS (5)
  1. HALDOL [Suspect]
     Indication: SCHIZOPHRENIA, PARANOID TYPE
     Dosage: 10 MG, 1 IN1 DAY, ORAL; 30 MG, 1 IN 1 DAY, ORAL; 20 MG, 1 IN 1 DAY, ORAL; 15 MG, 1 IN 1 DAY, ORAL
     Route: 048
     Dates: start: 20031028, end: 20031028
  2. HALDOL [Suspect]
     Indication: SCHIZOPHRENIA, PARANOID TYPE
     Dosage: 10 MG, 1 IN1 DAY, ORAL; 30 MG, 1 IN 1 DAY, ORAL; 20 MG, 1 IN 1 DAY, ORAL; 15 MG, 1 IN 1 DAY, ORAL
     Route: 048
     Dates: start: 20031031, end: 20031106
  3. HALDOL [Suspect]
     Indication: SCHIZOPHRENIA, PARANOID TYPE
     Dosage: 10 MG, 1 IN1 DAY, ORAL; 30 MG, 1 IN 1 DAY, ORAL; 20 MG, 1 IN 1 DAY, ORAL; 15 MG, 1 IN 1 DAY, ORAL
     Route: 048
     Dates: start: 20031107, end: 20031114
  4. HALDOL [Suspect]
     Indication: SCHIZOPHRENIA, PARANOID TYPE
     Dosage: 10 MG, 1 IN1 DAY, ORAL; 30 MG, 1 IN 1 DAY, ORAL; 20 MG, 1 IN 1 DAY, ORAL; 15 MG, 1 IN 1 DAY, ORAL
     Route: 048
     Dates: start: 20031115
  5. LORAZEPAM [Concomitant]

REACTIONS (3)
  - CONDITION AGGRAVATED [None]
  - NEUTROPENIA [None]
  - PSYCHIATRIC SYMPTOM [None]
